FAERS Safety Report 7065100-9 (Version None)
Quarter: 2010Q4

REPORT INFORMATION
  Report Type: 
  Country: None (occurrence: None)
  Receive Date: 20101022
  Receipt Date: 20101022
  Transmission Date: 20110411
  Serious: Yes (Other)
  Sender: FDA-Public Use
  Company Number: None

PATIENT
  Age: 8 Year
  Sex: Male
  Weight: 29.4838 kg

DRUGS (2)
  1. MIRALAX [Suspect]
     Indication: CHANGE OF BOWEL HABIT
     Dosage: 1 TBSP DAILY PO
     Route: 048
  2. MIRALAX [Suspect]
     Indication: CONSTIPATION
     Dosage: 1 TBSP DAILY PO
     Route: 048

REACTIONS (3)
  - GRUNTING [None]
  - TARDIVE DYSKINESIA [None]
  - TIC [None]
